FAERS Safety Report 10385989 (Version 1)
Quarter: 2014Q1

REPORT INFORMATION
  Report Type: Spontaneous
  Country: US (occurrence: None)
  Receive Date: 20140306
  Receipt Date: 20140306
  Transmission Date: 20141002
  Serious: Yes (Other)
  Sender: FDA-Public Use
  Company Number: 163-21880-13060253

PATIENT
  Age: 70 Year
  Sex: Male

DRUGS (15)
  1. REVLIMID (LENALIDOMIDE) (10 MILLIGRAM, CAPSULES) [Suspect]
     Indication: PLASMA CELL MYELOMA
     Dosage: 10 MG, 1 IN 1D, PO
     Route: 048
     Dates: start: 200907, end: 201004
  2. DEXAMETHASONE [Concomitant]
  3. PRILOSEC (OMEPRAZOLE) [Concomitant]
  4. ASPIRIN (ACETYLSALICYLIC ACID) [Concomitant]
  5. METOPROLOL [Concomitant]
  6. PRADAXA (DABIGATRAN ETEXILATE MESILATE) [Concomitant]
  7. LANOXIN (DIGOXIN) [Concomitant]
  8. LIPITOR (ATORVASTATIN) [Concomitant]
  9. TOPROL XL (METOPROLOL SUCCINATE) (100 MILLIGRAM) (METOPROLOL SUCCINATE) [Concomitant]
  10. CALCIUM 500 + D (CALCIUM VIT D) [Concomitant]
  11. VITAMIN D (ERGOCALCIFEROL) [Concomitant]
  12. GLUCOSAMINE [Concomitant]
  13. THERAGRAN [Concomitant]
  14. NITROSTAT (GLYCERYL TRINITRATE) [Concomitant]
  15. VELCADE (BORTEZOMIB) [Concomitant]

REACTIONS (3)
  - Thrombocytopenia [None]
  - Pancytopenia [None]
  - Plasma cell myeloma recurrent [None]
